FAERS Safety Report 12796618 (Version 7)
Quarter: 2017Q2

REPORT INFORMATION
  Report Type: Report from Study
  Country: US (occurrence: US)
  Receive Date: 20160929
  Receipt Date: 20170421
  Transmission Date: 20170830
  Serious: Yes (Life-Threatening)
  Sender: FDA-Public Use
  Company Number: US-PFIZER INC-2016407480

PATIENT
  Age: 42 Year
  Sex: Female
  Weight: 92 kg

DRUGS (15)
  1. FASLODEX [Suspect]
     Active Substance: FULVESTRANT
     Indication: BREAST CANCER METASTATIC
     Dosage: APPROXIMATELY 250 MG, DAYS 1 AND 15 OF CYCLE 1, THEN DAY 1 OF EACH SUBSEQUENT 28-DAY CYCLE
     Route: 030
     Dates: start: 20140703, end: 20160823
  2. CVS NAPROXEN SODIUM [Concomitant]
     Indication: PAIN
  3. GOSERELIN [Suspect]
     Active Substance: GOSERELIN
     Indication: HORMONE SUPPRESSION THERAPY
     Dosage: 3.6 MG, GIVE MONTHLY WITH FULVERSTRANT
     Route: 030
     Dates: start: 20160823, end: 20160823
  4. VITAMIN D3 [Concomitant]
     Active Substance: CHOLECALCIFEROL
     Indication: VITAMIN D DEFICIENCY
     Dosage: 5000 UNITS, EVERY OTHER DAY
     Route: 048
     Dates: start: 20160628
  5. CVS NAPROXEN SODIUM [Concomitant]
     Indication: BONE PAIN
  6. VITAMIN D2 [Concomitant]
     Active Substance: ERGOCALCIFEROL
     Indication: VITAMIN D DEFICIENCY
     Dosage: 50000 IU, ONCE A WEEK
     Route: 048
     Dates: start: 20160504, end: 20160628
  7. PALBOCICLIB [Suspect]
     Active Substance: PALBOCICLIB
     Indication: BREAST CANCER METASTATIC
     Dosage: 125 MG, DAILY FOR 3 WEEKS FOLLOWED BY 1 WEEK OFF
     Route: 048
     Dates: start: 20140703, end: 20160831
  8. NORCO/LORTAB [Concomitant]
     Indication: PAIN
     Dosage: [HYDROCODONE 5MG]/[PARACETAMOL 325 MG], EVERY 8 HOURS AS NEEDED
     Route: 048
     Dates: start: 20150505
  9. VALTREX [Concomitant]
     Active Substance: VALACYCLOVIR HYDROCHLORIDE
     Indication: LIP INFECTION
     Dosage: 500 MG, DAILY
     Route: 048
     Dates: start: 20151021
  10. NEURONTIN [Concomitant]
     Active Substance: GABAPENTIN
     Indication: HOT FLUSH
     Dosage: 300 MG, TWICE A DAY
     Route: 048
     Dates: start: 20140617
  11. CVS NAPROXEN SODIUM [Concomitant]
     Indication: ARTHRALGIA
  12. CVS NAPROXEN SODIUM [Concomitant]
     Indication: MYALGIA
  13. EMLA [Concomitant]
     Active Substance: LIDOCAINE\PRILOCAINE
     Indication: VULVOVAGINAL DRYNESS
     Dosage: UNK
     Route: 061
     Dates: start: 20140617
  14. OXYCODONE-ACETAMINOPHEN [Concomitant]
     Active Substance: ACETAMINOPHEN\OXYCODONE HYDROCHLORIDE
     Indication: PAIN
     Dosage: [OXYCODONE 7.5MG]/[PARACETAMOL 325 MG] AT BEDTIME WHEN NEEDED
     Route: 048
     Dates: start: 20160823
  15. CVS NAPROXEN SODIUM [Concomitant]
     Indication: HEADACHE
     Dosage: 440 MG, TWICE A DAY WITH MEALS
     Route: 048
     Dates: start: 20140717

REACTIONS (1)
  - Hypersensitivity [Recovered/Resolved]

NARRATIVE: CASE EVENT DATE: 20160826
